FAERS Safety Report 14990836 (Version 1)
Quarter: 2018Q2

REPORT INFORMATION
  Report Type: Spontaneous
  Country: US (occurrence: US)
  Receive Date: 20180517
  Receipt Date: 20180517
  Transmission Date: 20180711
  Serious: Yes (Hospitalization)
  Sender: FDA-Public Use
  Company Number: None

PATIENT
  Age: 62 Year
  Sex: Male
  Weight: 81.1 kg

DRUGS (1)
  1. REGORAFENIB Q21 DAYS [Suspect]
     Active Substance: REGORAFENIB
     Indication: TRANSITIONAL CELL CARCINOMA
     Route: 048
     Dates: start: 20180507, end: 20180515

REACTIONS (6)
  - Dyspnoea [None]
  - Pneumonia [None]
  - Hypotension [None]
  - Hypoxia [None]
  - Decreased appetite [None]
  - Oedema peripheral [None]

NARRATIVE: CASE EVENT DATE: 20180515
